FAERS Safety Report 16654404 (Version 2)
Quarter: 2019Q3

REPORT INFORMATION
  Report Type: Spontaneous
  Country: BE (occurrence: BE)
  Receive Date: 20190731
  Receipt Date: 20190826
  Transmission Date: 20191004
  Serious: Yes (Hospitalization)
  Sender: FDA-Public Use
  Company Number: BE-TEVA-2019-BE-1085832

PATIENT
  Age: 70 Year
  Sex: Male

DRUGS (7)
  1. ZOCOR [Concomitant]
     Active Substance: SIMVASTATIN
     Dosage: 40 MILLIGRAM DAILY;
     Route: 048
  2. ALLOPURINOL 150 MG [Concomitant]
     Dosage: 150 MILLIGRAM DAILY;
     Route: 048
  3. OXALIPLATIN. [Suspect]
     Active Substance: OXALIPLATIN
     Dosage: 3/2018-06/2018: ADJUVANT CHEMOTHERAPY WITH FOLFOX?05/06/2019: START FOLFOX + VECTIBIX
     Route: 042
     Dates: start: 201803
  4. AMLODIPINE [Concomitant]
     Active Substance: AMLODIPINE BESYLATE
     Dosage: 5 MILLIGRAM DAILY;
     Route: 048
  5. BELSAR PLUS 40 MG/25 MG [Concomitant]
     Dosage: 40 MILLIGRAM DAILY;
     Route: 048
  6. VECTIBIX [Concomitant]
     Active Substance: PANITUMUMAB
     Dosage: 05/06/2019: START FOLFOX + VECTIBIX
     Route: 042
     Dates: start: 20190605
  7. FLURACEDYL [Concomitant]
     Active Substance: FLUOROURACIL

REACTIONS (6)
  - Oxygen saturation decreased [Recovered/Resolved]
  - Hyperhidrosis [Recovered/Resolved]
  - Hypersensitivity [Recovered/Resolved]
  - Urinary incontinence [Recovered/Resolved]
  - Loss of consciousness [Recovered/Resolved]
  - Hypotension [Recovered/Resolved]

NARRATIVE: CASE EVENT DATE: 20190619
